FAERS Safety Report 6576392-4 (Version None)
Quarter: 2010Q1

REPORT INFORMATION
  Report Type: 
  Country: None (occurrence: None)
  Receive Date: 20100210
  Receipt Date: 20100105
  Transmission Date: 20100710
  Serious: Yes (Death, Other)
  Sender: FDA-Public Use
  Company Number: US-TYCO HEALTHCARE/MALLINCKRODT-T201000130

PATIENT
  Age: 61 Year
  Sex: Male

DRUGS (8)
  1. PROPOXYPHENE HCL AND ACETAMINOPHEN [Suspect]
     Dosage: UNK
     Route: 048
  2. ACETAMINOPHEN AND HYDROCODONE BITARTRATE [Suspect]
     Dosage: UNK
     Route: 048
  3. OXYCODONE HCL [Suspect]
     Dosage: UNK
     Route: 048
  4. STRYCHNINE [Suspect]
     Dosage: UNK
     Route: 048
  5. ARSENIC [Suspect]
     Dosage: UNK
     Route: 048
  6. TRAZODONE [Suspect]
     Dosage: UNK
     Route: 048
  7. ETHANOL [Suspect]
     Dosage: UNK
     Route: 048
  8. ACETAMINOPHEN W/PSEUDOEPHEDRINE [Suspect]
     Dosage: UNK
     Route: 048

REACTIONS (9)
  - CARDIAC ARREST [None]
  - COMPLETED SUICIDE [None]
  - DELIRIUM [None]
  - HAEMATEMESIS [None]
  - HAEMATURIA [None]
  - HYPERHIDROSIS [None]
  - MUSCLE SPASMS [None]
  - SOMNOLENCE [None]
  - TREMOR [None]
